FAERS Safety Report 16872699 (Version 1)
Quarter: 2019Q4

REPORT INFORMATION
  Report Type: Spontaneous
  Country: GB (occurrence: GB)
  Receive Date: 20191001
  Receipt Date: 20191001
  Transmission Date: 20200122
  Serious: Yes (Other)
  Sender: FDA-Public Use
  Company Number: None

PATIENT
  Age: 72 Year
  Sex: Female
  Weight: 94.5 kg

DRUGS (12)
  1. LANZOPROZOLE [Concomitant]
  2. RAMIPRIL. [Concomitant]
     Active Substance: RAMIPRIL
  3. ANLODOPINE [Concomitant]
  4. FILS OILS [Concomitant]
  5. PLENVU [Suspect]
     Active Substance: ASCORBIC ACID\POLYETHYLENE GLYCOL 3350\POTASSIUM CHLORIDE\SODIUM ASCORBATE\SODIUM CHLORIDE\SODIUM SULFATE
     Indication: BOWEL PREPARATION
     Dosage: ?          OTHER STRENGTH:NOT KNOWN;QUANTITY:1 1;OTHER FREQUENCY:2 HRS;?
     Route: 048
     Dates: start: 20190925, end: 20190925
  6. LEVOTHYROXIN [Concomitant]
     Active Substance: LEVOTHYROXINE
  7. CO-CODOMOL [Concomitant]
  8. VIT D [Concomitant]
     Active Substance: VITAMIN D NOS
  9. GARLIC. [Concomitant]
     Active Substance: GARLIC
  10. VIT B 12 [Concomitant]
     Active Substance: CYANOCOBALAMIN
  11. MAGNESIUM WITH VITAMEN B COMPLEX [Concomitant]
  12. CURCUMIN [Concomitant]
     Active Substance: CURCUMIN

REACTIONS (11)
  - Hypotension [None]
  - Head discomfort [None]
  - Drooling [None]
  - Dry mouth [None]
  - Heart rate increased [None]
  - Neck pain [None]
  - Drug hypersensitivity [None]
  - Eye disorder [None]
  - Product taste abnormal [None]
  - Dizziness [None]
  - Balance disorder [None]

NARRATIVE: CASE EVENT DATE: 20190925
